FAERS Safety Report 9468965 (Version 1)
Quarter: 2013Q3

REPORT INFORMATION
  Report Type: Spontaneous
  Country: US (occurrence: US)
  Receive Date: 20130821
  Receipt Date: 20130821
  Transmission Date: 20140515
  Serious: Yes (Death)
  Sender: FDA-Public Use
  Company Number: CHPA2013US013058

PATIENT
  Sex: Female

DRUGS (2)
  1. ASCRIPTIN BUFFERED CAPS UNKNOWN FORMULA [Suspect]
     Indication: ARTHRITIS
     Dosage: UNK, UNK
     Route: 048
  2. ACETYLSALICYLIC ACID [Suspect]
     Dosage: UNK, UNK
     Route: 048

REACTIONS (1)
  - Dementia Alzheimer^s type [Fatal]
